FAERS Safety Report 10197786 (Version 1)
Quarter: 2014Q2

REPORT INFORMATION
  Report Type: Spontaneous
  Country: CR (occurrence: CR)
  Receive Date: 20140527
  Receipt Date: 20140527
  Transmission Date: 20141212
  Serious: Yes (Hospitalization, Other)
  Sender: FDA-Public Use
  Company Number: CR-PFIZER INC-2014143692

PATIENT
  Age: 64 Year
  Sex: Female
  Weight: 74 kg

DRUGS (1)
  1. LYRICA [Suspect]
     Dosage: 150 MG, 1X/DAY
     Route: 048

REACTIONS (1)
  - Myocardial infarction [Unknown]
